FAERS Safety Report 11669578 (Version 1)
Quarter: 2015Q4

REPORT INFORMATION
  Report Type: Spontaneous
  Country: None (occurrence: US)
  Receive Date: 20151027
  Receipt Date: 20151027
  Transmission Date: 20160304
  Serious: No
  Sender: FDA-Public Use
  Company Number: US-AMPHASTAR PHARMACEUTICALS, INC.-1043466

PATIENT
  Age: 55 Year
  Sex: Female
  Weight: 56.82 kg

DRUGS (3)
  1. ENOXAPARIN SODIUM. [Suspect]
     Active Substance: ENOXAPARIN SODIUM
     Indication: FOOT OPERATION
     Route: 058
     Dates: start: 20141027
  2. OXYCODONE [Concomitant]
     Active Substance: OXYCODONE
  3. HYDROCODONE [Concomitant]
     Active Substance: HYDROCODONE

REACTIONS (6)
  - Injection site pain [Recovered/Resolved]
  - Allergic sinusitis [Recovered/Resolved]
  - Injection site swelling [Recovered/Resolved]
  - Injection site haemorrhage [Recovered/Resolved]
  - Pharyngeal oedema [Recovered/Resolved]
  - Eye irritation [Recovered/Resolved]

NARRATIVE: CASE EVENT DATE: 20150108
